FAERS Safety Report 16866813 (Version 2)
Quarter: 2019Q4

REPORT INFORMATION
  Report Type: Report from Study
  Country: None (occurrence: IT)
  Receive Date: 20190930
  Receipt Date: 20191204
  Transmission Date: 20200122
  Serious: Yes (Hospitalization)
  Sender: FDA-Public Use
  Company Number: IT-ABBVIE-19K-083-2943546-00

PATIENT
  Age: 68 Year
  Sex: Female

DRUGS (1)
  1. DUODOPA [Suspect]
     Active Substance: CARBIDOPA\LEVODOPA
     Indication: PARKINSON^S DISEASE
     Dosage: MD 2,5(+3)?CR 1,7?ED 1
     Route: 050
     Dates: start: 20151026, end: 20190906

REACTIONS (3)
  - Volvulus [Unknown]
  - Abdominal pain [Unknown]
  - Gastrointestinal disorder [Unknown]

NARRATIVE: CASE EVENT DATE: 201909
